FAERS Safety Report 6733868-4 (Version None)
Quarter: 2010Q2

REPORT INFORMATION
  Report Type: 
  Country: None (occurrence: None)
  Receive Date: 20100520
  Receipt Date: 20100513
  Transmission Date: 20101027
  Serious: Yes (Hospitalization)
  Sender: FDA-Public Use
  Company Number: JP-ROCHE-604171

PATIENT
  Sex: Female
  Weight: 68 kg

DRUGS (5)
  1. BLINDED IBANDRONIC ACID [Suspect]
     Indication: OSTEOPOROSIS
     Dosage: ROUTE: INTRAVENOUS (NOT OTHERWISE SPECIFIED). NOTE: UNCERTAINTY
     Route: 042
     Dates: start: 20070530
  2. BLINDED RISEDRONIC ACID [Suspect]
     Indication: OSTEOPOROSIS
     Route: 048
     Dates: start: 20070530
  3. CYANOCOBALAMIN [Concomitant]
     Route: 048
     Dates: start: 20080325
  4. CYANOCOBALAMIN [Concomitant]
     Route: 048
     Dates: start: 20080326, end: 20090626
  5. JUVELA N [Concomitant]
     Route: 048
     Dates: start: 20080326, end: 20090626

REACTIONS (1)
  - CARPAL TUNNEL SYNDROME [None]
